FAERS Safety Report 16260436 (Version 1)
Quarter: 2019Q2

REPORT INFORMATION
  Report Type: Spontaneous
  Country: US (occurrence: US)
  Receive Date: 20190430
  Receipt Date: 20190430
  Transmission Date: 20190711
  Serious: Yes (Hospitalization, Disabling)
  Sender: FDA-Public Use
  Company Number: None

PATIENT
  Age: 61 Year
  Sex: Male

DRUGS (9)
  1. ASPIRIN LOW 81 MG TABLETS [Concomitant]
     Dates: start: 20181002
  2. GLATIRAMER [Suspect]
     Active Substance: GLATIRAMER
     Indication: MULTIPLE SCLEROSIS
     Dosage: ?          OTHER FREQUENCY:THREE TIMES A WEEK;?
     Route: 058
  3. PRAVASTATIN 10MG TABLETS [Concomitant]
     Active Substance: PRAVASTATIN SODIUM
     Dates: start: 20181128
  4. METFORMIN 1000 MG TABLETS [Concomitant]
     Dates: start: 20181120
  5. LISINOPRIL 40 MG TABLETS [Concomitant]
     Dates: start: 20180318
  6. FLUCTICASONE SPRAY 50 MCG [Concomitant]
     Dates: start: 20190329
  7. CENTRUM SILVER TABLET [Concomitant]
     Dates: start: 20181123
  8. AMANTADINE 100MG TABLETS [Concomitant]
     Dates: start: 20190129
  9. AMITRIPTYLINE 25MG TABLETS [Concomitant]
     Dates: start: 20190227

REACTIONS (6)
  - Gaze palsy [None]
  - Palpitations [None]
  - Therapy cessation [None]
  - Gait inability [None]
  - Protrusion tongue [None]
  - Aphasia [None]

NARRATIVE: CASE EVENT DATE: 20190422
